FAERS Safety Report 6923546-0 (Version None)
Quarter: 2010Q3

REPORT INFORMATION
  Report Type: 
  Country: None (occurrence: None)
  Receive Date: 20100813
  Receipt Date: 20100809
  Transmission Date: 20110219
  Serious: Yes (Other)
  Sender: FDA-Public Use
  Company Number: A0873845A

PATIENT
  Sex: Female

DRUGS (1)
  1. FLOVENT [Suspect]
     Indication: PRODUCT USED FOR UNKNOWN INDICATION
     Dosage: 2PUFF TWICE PER DAY
     Route: 055

REACTIONS (5)
  - ADVERSE DRUG REACTION [None]
  - FEELING ABNORMAL [None]
  - PULMONARY OEDEMA [None]
  - RESPIRATORY DISORDER [None]
  - SUFFOCATION FEELING [None]
